FAERS Safety Report 17785045 (Version 2)
Quarter: 2022Q3

REPORT INFORMATION
  Report Type: Spontaneous
  Country: GR (occurrence: GR)
  Receive Date: 20200513
  Receipt Date: 20220805
  Transmission Date: 20221026
  Serious: Yes (Hospitalization)
  Sender: FDA-Public Use
  Company Number: GR-NOVARTISPH-NVSC2020GR129423

PATIENT
  Age: 71 Year
  Sex: Female
  Weight: 98 kg

DRUGS (13)
  1. LAPATINIB [Suspect]
     Active Substance: LAPATINIB
     Indication: Breast cancer metastatic
     Dosage: 1250 MG, QD (MOST RECENT DOSE PRIOR TO THE EVENT: 14/NOV/2018)
     Route: 048
     Dates: start: 20180618
  2. LAPATINIB [Suspect]
     Active Substance: LAPATINIB
     Dosage: 1000 MG, QD (MOST RECENT DOSE PRIOR TO THE EVENT: 14/NOV/2018)
     Route: 048
     Dates: start: 20180723, end: 20181113
  3. TRASTUZUMAB [Suspect]
     Active Substance: TRASTUZUMAB
     Indication: Breast cancer metastatic
     Dosage: 780 MG, TIW (MOST RECENT DOSE PRIOR TO THE EVENT: 10/MAY/2019)
     Route: 042
     Dates: start: 20161025, end: 20161025
  4. CAPECITABINE [Suspect]
     Active Substance: CAPECITABINE
     Indication: Breast cancer metastatic
     Dosage: 2000 MG (0.5 DAY, MOST RECENT DOSE PRIOR TO THE EVENT: 22/OCT/2018)
     Route: 048
     Dates: start: 20180618, end: 20180709
  5. GEMCITABINE [Suspect]
     Active Substance: GEMCITABINE
     Indication: Breast cancer metastatic
     Dosage: 2000 MG (MOST RECENT DOSE PRIOR TO THE EVENT: 28/AUG/2019)
     Route: 042
     Dates: start: 20190510
  6. GEMCITABINE [Suspect]
     Active Substance: GEMCITABINE
     Dosage: 1500 MG (MOST RECENT DOSE PRIOR TO THE EVENT: 28/AUG/2019)
     Route: 042
     Dates: start: 20190724, end: 20190821
  7. DOCETAXEL [Suspect]
     Active Substance: DOCETAXEL
     Indication: Breast cancer metastatic
     Dosage: 160 MG, TIW (MOST RECENT DOSE PRIOR TO THE EVENT: 17/NOV/2016)
     Route: 042
     Dates: start: 20161025, end: 20161025
  8. PERTUZUMAB [Suspect]
     Active Substance: PERTUZUMAB
     Indication: Breast cancer metastatic
     Dosage: 840 MG, TIW (MOST RECENT DOSE PRIOR TO THE EVENT: 12/DEC/2016)
     Route: 042
     Dates: start: 20161117, end: 20161117
  9. ADO-TRASTUZUMAB EMTANSINE [Suspect]
     Active Substance: ADO-TRASTUZUMAB EMTANSINE
     Indication: Breast cancer metastatic
     Dosage: 270 MG, TIW
     Route: 042
     Dates: start: 20170726, end: 20180504
  10. LEVOTHYROXINE [Concomitant]
     Active Substance: LEVOTHYROXINE
     Indication: Product used for unknown indication
     Dosage: UNK
     Route: 065
     Dates: start: 20090615
  11. CALCIUM CARBONATE\CHOLECALCIFEROL [Concomitant]
     Active Substance: CALCIUM CARBONATE\CHOLECALCIFEROL
     Indication: Product used for unknown indication
     Dosage: UNK
     Route: 065
     Dates: start: 20171218
  12. ZOMETA [Concomitant]
     Active Substance: ZOLEDRONIC ACID
     Indication: Product used for unknown indication
     Dosage: UNK
     Route: 065
     Dates: start: 20161018
  13. ACETAMINOPHEN\CODEINE PHOSPHATE [Concomitant]
     Active Substance: ACETAMINOPHEN\CODEINE PHOSPHATE
     Indication: Product used for unknown indication
     Dosage: UNK
     Route: 065

REACTIONS (1)
  - Cerebrovascular accident [Recovered/Resolved]

NARRATIVE: CASE EVENT DATE: 20190915
